FAERS Safety Report 13148221 (Version 1)
Quarter: 2017Q1

REPORT INFORMATION
  Report Type: Spontaneous
  Country: US (occurrence: US)
  Receive Date: 20170125
  Receipt Date: 20170125
  Transmission Date: 20170428
  Serious: Yes (Hospitalization, Other)
  Sender: FDA-Public Use
  Company Number: US-BAYER-2017-010347

PATIENT
  Age: 39 Year
  Sex: Female

DRUGS (8)
  1. ADEMPAS [Suspect]
     Active Substance: RIOCIGUAT
     Indication: PULMONARY ARTERIAL HYPERTENSION
     Dosage: 0.5 MG, TID
     Route: 048
     Dates: start: 20161223
  2. LOVENOX [Concomitant]
     Active Substance: ENOXAPARIN SODIUM
     Dosage: UNK
  3. METOLAZONE. [Concomitant]
     Active Substance: METOLAZONE
     Dosage: 2.5 MG, QD
  4. ERGOCALCIFEROL. [Concomitant]
     Active Substance: ERGOCALCIFEROL
     Dosage: 500000 IU, OW
  5. FERROUS SULFATE. [Concomitant]
     Active Substance: FERROUS SULFATE
     Dosage: 325 MG, BID
  6. VELETRI [Concomitant]
     Active Substance: EPOPROSTENOL
     Dosage: UNK
     Dates: start: 20170114
  7. WARFARIN [Concomitant]
     Active Substance: WARFARIN
     Dosage: 2.5 MG, QD
  8. FAMOTIDINE. [Concomitant]
     Active Substance: FAMOTIDINE
     Dosage: 40 MG, BID

REACTIONS (6)
  - Faeces discoloured [Recovered/Resolved]
  - Fatigue [None]
  - Gastrointestinal haemorrhage [Recovered/Resolved]
  - Dizziness postural [None]
  - Muscle spasms [None]
  - Abdominal pain [Recovered/Resolved]

NARRATIVE: CASE EVENT DATE: 20170110
